FAERS Safety Report 11054154 (Version 4)
Quarter: 2016Q1

REPORT INFORMATION
  Report Type: Report from Study
  Country: US (occurrence: US)
  Receive Date: 20150422
  Receipt Date: 20160224
  Transmission Date: 20160525
  Serious: Yes (Other)
  Sender: FDA-Public Use
  Company Number: US-AMGEN-USASP2015037492

PATIENT
  Age: 59 Year
  Sex: Female

DRUGS (1)
  1. PROLIA [Suspect]
     Active Substance: DENOSUMAB
     Indication: OSTEOPOROSIS POSTMENOPAUSAL
     Dosage: UNK
     Route: 065

REACTIONS (6)
  - Candida infection [Not Recovered/Not Resolved]
  - Speech disorder [Unknown]
  - Osteonecrosis of jaw [Unknown]
  - Vein disorder [Unknown]
  - Tooth loss [Unknown]
  - Loose tooth [Unknown]
